FAERS Safety Report 15732999 (Version 2)
Quarter: 2019Q4

REPORT INFORMATION
  Report Type: Spontaneous
  Country: US (occurrence: US)
  Receive Date: 20181218
  Receipt Date: 20191119
  Transmission Date: 20200122
  Serious: Yes (Hospitalization, Other)
  Sender: FDA-Public Use
  Company Number: US-ELI_LILLY_AND_COMPANY-US201812006933

PATIENT
  Age: 51 Year
  Sex: Female

DRUGS (4)
  1. HUMALOG [Suspect]
     Active Substance: INSULIN LISPRO
     Indication: TYPE 1 DIABETES MELLITUS
     Dosage: UNK UNK, PRN
     Route: 058
     Dates: start: 201712
  2. HUMALOG [Suspect]
     Active Substance: INSULIN LISPRO
     Dosage: UNK UNK, PRN
     Route: 058
  3. HUMALOG [Suspect]
     Active Substance: INSULIN LISPRO
     Dosage: UNK UNK, PRN
     Route: 058
  4. LEVEMIR [Concomitant]
     Active Substance: INSULIN DETEMIR
     Indication: TYPE 1 DIABETES MELLITUS
     Dosage: 8 U, EACH EVENING
     Route: 065

REACTIONS (19)
  - Neoplasm malignant [Unknown]
  - Sinusitis [Unknown]
  - Asthenia [Recovered/Resolved]
  - Back pain [Not Recovered/Not Resolved]
  - Urine abnormality [Not Recovered/Not Resolved]
  - Blood glucose increased [Unknown]
  - Tremor [Recovered/Resolved]
  - Blood glucose decreased [Recovered/Resolved]
  - Malaise [Unknown]
  - Incorrect dose administered [Unknown]
  - Loss of consciousness [Unknown]
  - Weight decreased [Unknown]
  - Visual impairment [Unknown]
  - Pollakiuria [Unknown]
  - Feeding disorder [Unknown]
  - Accidental overdose [Not Recovered/Not Resolved]
  - Overdose [Unknown]
  - Blood glucose decreased [Recovered/Resolved]
  - Blood glucose increased [Recovered/Resolved]

NARRATIVE: CASE EVENT DATE: 20181208
